FAERS Safety Report 8657693 (Version 5)
Quarter: 2013Q2

REPORT INFORMATION
  Report Type: Spontaneous
  Country: US (occurrence: US)
  Receive Date: 20120710
  Receipt Date: 20130531
  Transmission Date: 20140414
  Serious: Yes (Hospitalization, Congenital Anomaly)
  Sender: FDA-Public Use
  Company Number: US-JNJFOC-20120701874

PATIENT
  Age: 0 Year
  Sex: Female

DRUGS (9)
  1. TOPAMAX [Suspect]
     Indication: FOETAL EXPOSURE DURING PREGNANCY
     Route: 064
     Dates: start: 200802, end: 2010
  2. TOPAMAX [Suspect]
     Indication: FOETAL EXPOSURE DURING PREGNANCY
     Route: 064
     Dates: start: 2009, end: 2011
  3. TERCONAZOLE [Suspect]
     Indication: FOETAL EXPOSURE DURING PREGNANCY
     Route: 065
     Dates: start: 201103
  4. SUMATRIPTAN [Suspect]
     Indication: FOETAL EXPOSURE DURING PREGNANCY
     Route: 065
     Dates: start: 201103
  5. CITALOPRAM HBR [Suspect]
     Indication: FOETAL EXPOSURE DURING PREGNANCY
     Route: 065
  6. COMBIVENT INHALER [Suspect]
     Indication: FOETAL EXPOSURE DURING PREGNANCY
     Route: 045
     Dates: start: 201009
  7. CIPRODEX [Suspect]
     Indication: FOETAL EXPOSURE DURING PREGNANCY
     Route: 001
     Dates: end: 201102
  8. HYDROCODONE [Suspect]
     Indication: FOETAL EXPOSURE DURING PREGNANCY
     Route: 065
  9. PRENATAL VITAMINS [Concomitant]
     Indication: FOETAL EXPOSURE DURING PREGNANCY
     Route: 065
     Dates: start: 201104

REACTIONS (4)
  - Cardiovascular disorder [Unknown]
  - Neonatal respiratory distress syndrome [Unknown]
  - Congenital hypothyroidism [Unknown]
  - Premature baby [Not Recovered/Not Resolved]
